FAERS Safety Report 6756681-0 (Version None)
Quarter: 2010Q2

REPORT INFORMATION
  Report Type: 
  Country: None (occurrence: None)
  Receive Date: 20100604
  Receipt Date: 20100524
  Transmission Date: 20101027
  Serious: Yes (Other)
  Sender: FDA-Public Use
  Company Number: GR-WATSON-2010-07115

PATIENT
  Age: 64 Year
  Sex: Female

DRUGS (1)
  1. PREDNISOLONE ACETATE [Suspect]
     Indication: PERICARDIAL EFFUSION
     Dosage: 25 MG, TID
     Route: 042

REACTIONS (1)
  - ATRIAL TACHYCARDIA [None]
